FAERS Safety Report 9310020 (Version 1)
Quarter: 2013Q2

REPORT INFORMATION
  Report Type: Spontaneous
  Country: JP (occurrence: JP)
  Receive Date: 20130527
  Receipt Date: 20130527
  Transmission Date: 20140414
  Serious: Yes (Death)
  Sender: FDA-Public Use
  Company Number: JP-009507513-1305JPN014177

PATIENT
  Age: 9 Year
  Sex: Female

DRUGS (3)
  1. TEMODAL [Suspect]
     Indication: MELANOSIS
     Dosage: 75 MG/M2, UNK FOR 4 WEEKS-FIRST COURSE
     Route: 048
  2. TEMODAL [Suspect]
     Dosage: 100 MG/M2, UNK FOR 2 WEEKS
     Route: 048
  3. TEMODAL [Suspect]
     Dosage: 150 MG/M2, UNK FOR 5 DAYS SECOND COURSE
     Route: 048

REACTIONS (3)
  - Disease progression [Fatal]
  - Off label use [Unknown]
  - Drug ineffective [Unknown]
